FAERS Safety Report 6212194-6 (Version None)
Quarter: 2009Q2

REPORT INFORMATION
  Report Type: 
  Country: None (occurrence: None)
  Receive Date: 20090602
  Receipt Date: 20090527
  Transmission Date: 20091009
  Serious: Yes (Hospitalization, Other)
  Sender: FDA-Public Use
  Company Number: PHHO2009BE05250

PATIENT
  Sex: Male

DRUGS (4)
  1. RAD 666 RAD+TAB [Suspect]
     Indication: TRANSITIONAL CELL CARCINOMA
     Dosage: 10 MG, UNK
     Route: 048
     Dates: start: 20081128
  2. PANTOZOL [Concomitant]
     Dosage: UNK
  3. ZOLPIDEM TARTRATE [Concomitant]
     Dosage: UNK
  4. FRAXODI [Concomitant]
     Dosage: UNK

REACTIONS (6)
  - CONFUSIONAL STATE [None]
  - DEHYDRATION [None]
  - DRY MOUTH [None]
  - DRY SKIN [None]
  - GENERAL PHYSICAL CONDITION ABNORMAL [None]
  - MENTAL STATUS CHANGES [None]
